FAERS Safety Report 13698237 (Version 1)
Quarter: 2017Q2

REPORT INFORMATION
  Report Type: Spontaneous
  Country: US (occurrence: US)
  Receive Date: 20170628
  Receipt Date: 20170628
  Transmission Date: 20170830
  Serious: No
  Sender: FDA-Public Use
  Company Number: US-PFIZER INC-2017277489

PATIENT
  Age: 59 Year
  Sex: Male
  Weight: 71.66 kg

DRUGS (15)
  1. DICLOFENAC [Concomitant]
     Active Substance: DICLOFENAC
     Dosage: UNK UNK, DAILY(1-2 GM TO AFFECTED AREA (S) TOPICALLY 3-4 TIME DAILY)
     Route: 061
  2. LIDOCAINE. [Concomitant]
     Active Substance: LIDOCAINE
     Dosage: UNK UNK, DAILY (APPLY 1-2 GRAMS TO AFFECTED AREA(S) TOPICAL 3-4 TIMES DAILY)
     Route: 061
  3. MEDROL [Suspect]
     Active Substance: METHYLPREDNISOLONE
     Dosage: 4 DF, UNK (4 TABLET TAKE ORALLY AS DIRECTED)
     Route: 048
  4. FLECTOR [Suspect]
     Active Substance: DICLOFENAC EPOLAMINE
     Indication: MUSCULOSKELETAL PAIN
  5. NAPROXEN. [Concomitant]
     Active Substance: NAPROXEN
     Dosage: 375 MG, 2X/DAY
     Route: 048
  6. FLECTOR [Suspect]
     Active Substance: DICLOFENAC EPOLAMINE
     Indication: FIBROMYALGIA
  7. IBUPROFEN. [Concomitant]
     Active Substance: IBUPROFEN
     Dosage: 200 MG, AS NEEDED (1 TABLET AS NEEDED ORALLY OVER 6 HRS)
     Route: 048
  8. CLARITIN [Concomitant]
     Active Substance: LORATADINE
     Dosage: 10 MG, UNK
     Route: 048
  9. VOLTAREN [Concomitant]
     Active Substance: DICLOFENAC SODIUM
     Indication: PAIN
     Dosage: UNK, 4X/DAY  (2-4 GRAMS EXTERNALLY APPLY TO AREA OF PAIN QID)
  10. FLECTOR [Suspect]
     Active Substance: DICLOFENAC EPOLAMINE
     Indication: NECK PAIN
     Dosage: UNK UNK, 2X/DAY(Q 12 HOURS)
     Route: 062
  11. AMBIEN [Concomitant]
     Active Substance: ZOLPIDEM TARTRATE
     Dosage: 5 MG, UNK
     Route: 048
  12. NORCO [Concomitant]
     Active Substance: ACETAMINOPHEN\HYDROCODONE BITARTRATE
     Indication: FIBROMYALGIA
     Dosage: 1 DF, AS NEEDED (HYDROCODONE BITARTRATE : 10- PARACETAMOL: 325 MG, 1 TABLET, ORALLY, PO Q4-6 HRS PRN
     Route: 048
  13. CYCLOBENZAPRINE HCL [Concomitant]
     Active Substance: CYCLOBENZAPRINE HYDROCHLORIDE
     Indication: MUSCLE SPASMS
     Dosage: 10 MG, AS NEEDED (1 TABLET ORALLY PO QD PRN MS)
     Route: 048
  14. SUMATRIPTAN. [Concomitant]
     Active Substance: SUMATRIPTAN
     Dosage: UNK UNK, AS NEEDED (5 MG/ ACT SOLUTION 1 PUFF AS NEEDED ONE TIME NASALLY ONCE A DAY)
     Route: 045
  15. OXYCODONE HYDROCHLORIDE. [Concomitant]
     Active Substance: OXYCODONE HYDROCHLORIDE
     Indication: PAIN
     Dosage: 10 MG, AS NEEDED (1 TABLET ORALLY PO TID PRN)
     Route: 048

REACTIONS (10)
  - Libido decreased [Unknown]
  - Visual impairment [Unknown]
  - Tinnitus [Unknown]
  - Disturbance in attention [Unknown]
  - Night sweats [Unknown]
  - Fatigue [Unknown]
  - Insomnia [Unknown]
  - Product use in unapproved indication [Unknown]
  - Gait disturbance [Unknown]
  - Amnesia [Unknown]
